FAERS Safety Report 6943405-7 (Version None)
Quarter: 2010Q3

REPORT INFORMATION
  Report Type: 
  Country: None (occurrence: None)
  Receive Date: 20100826
  Receipt Date: 20100818
  Transmission Date: 20110219
  Serious: Yes (Other)
  Sender: FDA-Public Use
  Company Number: US-AMGEN-QUU432556

PATIENT
  Sex: Male

DRUGS (3)
  1. NPLATE [Suspect]
     Indication: IDIOPATHIC THROMBOCYTOPENIC PURPURA
     Dates: start: 20090112, end: 20090511
  2. CORTICOSTEROIDS [Concomitant]
     Dates: start: 20040101
  3. FOLIC ACID [Concomitant]

REACTIONS (2)
  - ABSCESS LIMB [None]
  - BACTERIAL INFECTION [None]
